FAERS Safety Report 9925737 (Version 1)
Quarter: 2014Q1

REPORT INFORMATION
  Report Type: Spontaneous
  Country: US (occurrence: US)
  Receive Date: 20140226
  Receipt Date: 20140226
  Transmission Date: 20141002
  Serious: Yes (Other)
  Sender: FDA-Public Use
  Company Number: US-PFIZER INC-2014054627

PATIENT
  Sex: Male

DRUGS (4)
  1. PROTONIX [Suspect]
     Dosage: UNK, 1X/DAY
  2. PROTONIX [Suspect]
     Dosage: UNK, 2X/DAY
  3. PROTONIX [Suspect]
     Dosage: UNK
  4. LIPITOR [Concomitant]
     Dosage: UNK

REACTIONS (1)
  - Oesophageal dilatation [Unknown]
